FAERS Safety Report 19057396 (Version 1)
Quarter: 2021Q1

REPORT INFORMATION
  Report Type: Spontaneous
  Country: RO (occurrence: RO)
  Receive Date: 20210324
  Receipt Date: 20210324
  Transmission Date: 20210420
  Serious: Yes (Hospitalization, Other)
  Sender: FDA-Public Use
  Company Number: RO-ASSERTIO THERAPEUTICS, INC.-RO-2021AST000037

PATIENT
  Age: 73 Year
  Sex: Female

DRUGS (4)
  1. GENTAMICIN. [Concomitant]
     Active Substance: GENTAMICIN
     Indication: ULCERATIVE KERATITIS
  2. METHOTREXATE. [Concomitant]
     Active Substance: METHOTREXATE
     Dosage: 7.5 MG/WEEK
  3. INDOMETHACIN SUPPOSITORIES [Suspect]
     Active Substance: INDOMETHACIN
     Indication: ULCERATIVE KERATITIS
     Dosage: UNK UNK, QID
     Route: 061
  4. METHOTREXATE. [Concomitant]
     Active Substance: METHOTREXATE
     Indication: RHEUMATOID ARTHRITIS
     Dosage: 2.5 MG, Q8H

REACTIONS (1)
  - Corneal perforation [Unknown]
